FAERS Safety Report 4783220-6 (Version None)
Quarter: 2005Q3

REPORT INFORMATION
  Report Type: 
  Country: None (occurrence: None)
  Receive Date: 20050929
  Receipt Date: 20031029
  Transmission Date: 20060218
  Serious: Yes (Congenital Anomaly)
  Sender: FDA-Public Use
  Company Number: GB-ABBOTT-03P-167-0239076-00

PATIENT
  Sex: Male
  Weight: 2.5 kg

DRUGS (1)
  1. EPILIM [Suspect]
     Indication: DRUG EXPOSURE DURING PREGNANCY

REACTIONS (26)
  - ABNORMAL BEHAVIOUR [None]
  - AFFECT LABILITY [None]
  - ASPERGER'S DISORDER [None]
  - ASTHMA [None]
  - CONGENITAL FOOT MALFORMATION [None]
  - CONGENITAL HAND MALFORMATION [None]
  - CONGENITAL JAW MALFORMATION [None]
  - CONGENITAL NOSE MALFORMATION [None]
  - COORDINATION ABNORMAL [None]
  - DEAFNESS [None]
  - DEVELOPMENTAL DELAY [None]
  - DRUG EXPOSURE DURING PREGNANCY [None]
  - EAR MALFORMATION [None]
  - EAR TUBE INSERTION [None]
  - FACIAL DYSMORPHISM [None]
  - FEEDING DISORDER NEONATAL [None]
  - FOETAL VALPROATE SYNDROME [None]
  - HEAD DEFORMITY [None]
  - HYPERTHYROIDISM [None]
  - INGUINAL HERNIA [None]
  - IRRITABILITY [None]
  - LEARNING DISORDER [None]
  - MALOCCLUSION [None]
  - OTITIS MEDIA [None]
  - SOMNOLENCE [None]
  - SPEECH DISORDER DEVELOPMENTAL [None]
